FAERS Safety Report 9511594 (Version 2)
Quarter: 2013Q4

REPORT INFORMATION
  Report Type: Report from Study
  Country: CO (occurrence: CO)
  Receive Date: 20130910
  Receipt Date: 20131028
  Transmission Date: 20140711
  Serious: Yes (Death, Hospitalization)
  Sender: FDA-Public Use
  Company Number: PHHY2013CO098763

PATIENT
  Age: 80 Year
  Sex: Female

DRUGS (1)
  1. SANDOSTATIN LAR [Suspect]
     Dosage: 30 MG, MONTHLY
     Route: 058

REACTIONS (5)
  - Diarrhoea [Fatal]
  - Pain [Fatal]
  - Swelling [Recovering/Resolving]
  - Dizziness [Recovering/Resolving]
  - Incorrect route of drug administration [Unknown]
